FAERS Safety Report 8226543-0 (Version None)
Quarter: 2012Q1

REPORT INFORMATION
  Report Type: 
  Country: None (occurrence: None)
  Receive Date: 20120322
  Receipt Date: 20120313
  Transmission Date: 20120608
  Serious: No
  Sender: FDA-Public Use
  Company Number: US-BIOGENIDEC-2012BI008938

PATIENT
  Age: 21 Year
  Sex: Female

DRUGS (2)
  1. AVONEX [Suspect]
     Indication: MULTIPLE SCLEROSIS
     Route: 030
     Dates: start: 20110212, end: 20110810
  2. AVONEX [Suspect]
     Route: 030
     Dates: start: 20120117

REACTIONS (5)
  - PAIN [None]
  - FACIAL PAIN [None]
  - MALAISE [None]
  - EYE MOVEMENT DISORDER [None]
  - HEADACHE [None]
